FAERS Safety Report 24917169 (Version 1)
Quarter: 2025Q1

REPORT INFORMATION
  Report Type: Spontaneous
  Country: US (occurrence: US)
  Receive Date: 20250203
  Receipt Date: 20250203
  Transmission Date: 20250409
  Serious: Yes (Hospitalization)
  Sender: BAYER HEALTHCARE PHARMACEUTICALS INC.
  Company Number: US-BAYER-2025A011454

PATIENT
  Age: 67 Year
  Sex: Male

DRUGS (3)
  1. NUBEQA [Suspect]
     Active Substance: DAROLUTAMIDE
     Indication: Product used for unknown indication
     Dosage: 300 MG, BID
  2. ORGOVYX [Suspect]
     Active Substance: RELUGOLIX
     Indication: Prostate cancer
     Dosage: 360 MG, QD
     Route: 048
     Dates: start: 20240815, end: 20240815
  3. ORGOVYX [Suspect]
     Active Substance: RELUGOLIX
     Indication: Prostate cancer
     Dosage: 120 MG, QD
     Route: 048
     Dates: start: 20240816

REACTIONS (12)
  - Cardiac disorder [Unknown]
  - Hepatic steatosis [Unknown]
  - Balance disorder [Not Recovered/Not Resolved]
  - Confusional state [Unknown]
  - Blood glucose increased [Unknown]
  - Flushing [Unknown]
  - Hyperhidrosis [Unknown]
  - Dizziness [Unknown]
  - Hot flush [Unknown]
  - Hepatic enzyme increased [Unknown]
  - Fatigue [Unknown]
  - Adverse drug reaction [Unknown]
